FAERS Safety Report 9618383 (Version 7)
Quarter: 2014Q3

REPORT INFORMATION
  Report Type: Report from Study
  Country: CA (occurrence: CA)
  Receive Date: 20131014
  Receipt Date: 20140731
  Transmission Date: 20150326
  Serious: Yes (Hospitalization)
  Sender: FDA-Public Use
  Company Number: CA-ROCHE-1283951

PATIENT
  Age: 71 Year
  Sex: Male

DRUGS (60)
  1. VINCRISTINE [Suspect]
     Active Substance: VINCRISTINE
     Indication: DIFFUSE LARGE B-CELL LYMPHOMA
     Dosage: DATE OF MOST RECENT DOSE PRIOR TO SAE: 18/SEP/2013
     Route: 042
     Dates: start: 20130918
  2. CLINDAMYCIN [Concomitant]
     Active Substance: CLINDAMYCIN\CLINDAMYCIN PHOSPHATE
     Route: 048
     Dates: start: 20131024
  3. TIAZAC (CANADA) [Concomitant]
     Route: 048
     Dates: start: 201202
  4. TAMSULOSIN [Concomitant]
     Active Substance: TAMSULOSIN
     Route: 065
     Dates: start: 200909
  5. SODIUM BICARBONATE. [Concomitant]
     Active Substance: SODIUM BICARBONATE
     Dosage: ORAL ONCOLOGICAL MOUTH WASH, AS NEEDED
     Route: 002
     Dates: start: 20131112, end: 20131120
  6. APO-CEFUROXIME [Concomitant]
     Route: 048
     Dates: start: 20140428, end: 20140507
  7. TAMIFLU [Concomitant]
     Active Substance: OSELTAMIVIR PHOSPHATE
     Route: 048
     Dates: start: 20140129, end: 20140131
  8. NISTATINA [Concomitant]
     Route: 048
     Dates: start: 20130904, end: 20130918
  9. LIDOCAINE. [Concomitant]
     Active Substance: LIDOCAINE
     Dosage: 2 %, ORAL ONCOLOGICAL MOUTH WASH, AS NEEDED
     Route: 065
     Dates: start: 20131017, end: 20131120
  10. TECTA [Concomitant]
     Active Substance: PANTOPRAZOLE MAGNESIUM
     Route: 048
     Dates: start: 20130928
  11. TECTA [Concomitant]
     Active Substance: PANTOPRAZOLE MAGNESIUM
     Route: 048
     Dates: start: 20131003
  12. ATIVAN [Concomitant]
     Active Substance: LORAZEPAM
     Route: 048
     Dates: start: 20130928, end: 20130929
  13. VITAMIN B12 [Concomitant]
     Active Substance: CYANOCOBALAMIN
     Route: 048
  14. CYCLOPHOSPHAMIDE. [Suspect]
     Active Substance: CYCLOPHOSPHAMIDE
     Indication: DIFFUSE LARGE B-CELL LYMPHOMA
     Dosage: DATE OF LAST DOSE PRIOR TO SAE: 18/SEP/2013
     Route: 042
     Dates: start: 20130918
  15. CLINDAMYCIN [Concomitant]
     Active Substance: CLINDAMYCIN\CLINDAMYCIN PHOSPHATE
     Route: 048
     Dates: start: 20130904, end: 20130914
  16. FRAGMIN [Concomitant]
     Active Substance: DALTEPARIN SODIUM
     Dosage: DAILY DOSE: 5000 UNITS
     Route: 065
     Dates: start: 20130928, end: 20130930
  17. NEUPOGEN [Concomitant]
     Active Substance: FILGRASTIM
     Route: 058
     Dates: start: 20130919
  18. APO-RAMIPRIL [Concomitant]
     Active Substance: RAMIPRIL
     Route: 065
     Dates: start: 200405, end: 20131229
  19. ASPIRIN. [Concomitant]
     Active Substance: ASPIRIN
     Dosage: AS NEEDED
     Route: 048
  20. MYCOSTATIN [Concomitant]
     Active Substance: NYSTATIN
     Dosage: DOSE: 100000 UNITS, ORAL ONCOLOGICAL MOUTH WASH, AS NEEDED
     Route: 065
     Dates: start: 20131024, end: 20131211
  21. CODEINE SYRUP [Concomitant]
     Route: 065
     Dates: start: 20140409, end: 20140507
  22. FLU VACCINE [Concomitant]
     Active Substance: INFLUENZA VIRUS VACCINE
     Dosage: IN MORNING
     Route: 065
     Dates: start: 20131031, end: 20131031
  23. ZOFRAN [Concomitant]
     Active Substance: ONDANSETRON HYDROCHLORIDE
     Dosage: AS NEEDED
     Route: 042
     Dates: start: 20130918
  24. TYLENOL [Concomitant]
     Active Substance: ACETAMINOPHEN
     Dosage: AS NEEDED
     Route: 048
     Dates: start: 20130918
  25. TYLENOL [Concomitant]
     Active Substance: ACETAMINOPHEN
     Dosage: EXTRA STRENGTH, AS NEEDED
     Route: 048
     Dates: start: 20130926
  26. PREDNISONE. [Suspect]
     Active Substance: PREDNISONE
     Indication: DIFFUSE LARGE B-CELL LYMPHOMA
     Dosage: DATE OF LAST DOSE PRIOR TO SAE: 18/SEP/2013
     Route: 048
     Dates: start: 20130918
  27. RABEPRAZOLE [Concomitant]
     Active Substance: RABEPRAZOLE
     Route: 065
  28. AMOXYLIN [Concomitant]
     Route: 048
     Dates: start: 20131002, end: 20131002
  29. SODIUM BICARBONATE. [Concomitant]
     Active Substance: SODIUM BICARBONATE
     Dosage: ORAL ONCOLOGICAL MOUTH WASH, AS NEEDED
     Route: 002
     Dates: start: 20131024, end: 20131211
  30. LIDOCAINE. [Concomitant]
     Active Substance: LIDOCAINE
     Dosage: 2 %, ORAL ONCOLOGICAL MOUTH WASH, AS NEEDED
     Route: 065
     Dates: start: 20131204, end: 20131211
  31. MYCOSTATIN [Concomitant]
     Active Substance: NYSTATIN
     Dosage: DOSE: 100000 UNITS, ORAL ONCOLOGICAL MOUTH WASH, AS NEEDED
     Route: 065
     Dates: start: 20131017, end: 20131120
  32. METOCLOPRAMIDE. [Concomitant]
     Active Substance: METOCLOPRAMIDE
     Dosage: AS NEEDED
     Route: 065
     Dates: start: 20131017
  33. RITUXIMAB [Suspect]
     Active Substance: RITUXIMAB
     Indication: DIFFUSE LARGE B-CELL LYMPHOMA
     Dosage: DATE OF LAST DOSE PRIOR TO SAE: 18/SEP/2013 (720 MG)
     Route: 042
     Dates: start: 20130918
  34. VENLAFAXINE HCL [Concomitant]
     Active Substance: VENLAFAXINE HYDROCHLORIDE
     Route: 048
  35. NEUPOGEN [Concomitant]
     Active Substance: FILGRASTIM
     Route: 058
     Dates: start: 20131101
  36. SPIRIVA [Concomitant]
     Active Substance: TIOTROPIUM BROMIDE MONOHYDRATE
     Route: 065
  37. SODIUM BICARBONATE. [Concomitant]
     Active Substance: SODIUM BICARBONATE
     Dosage: ORAL ONCOLOGICAL MOUTH WASH, AS NEEDED
     Route: 002
     Dates: start: 20131017, end: 20131120
  38. SODIUM BICARBONATE. [Concomitant]
     Active Substance: SODIUM BICARBONATE
     Dosage: ORAL ONCOLOGICAL MOUTH WASH, AS NEEDED
     Route: 002
     Dates: start: 20131204, end: 20131211
  39. CODEINE SYRUP [Concomitant]
     Route: 065
     Dates: start: 20131029
  40. ALLOPURINOL. [Concomitant]
     Active Substance: ALLOPURINOL
     Route: 048
     Dates: start: 20130911
  41. PREDNISONE. [Concomitant]
     Active Substance: PREDNISONE
     Route: 065
     Dates: start: 20130913
  42. METHYLPREDNISOLONE [Concomitant]
     Active Substance: METHYLPREDNISOLONE
     Dosage: AS  NEEDED
     Route: 042
     Dates: start: 20130918
  43. DOXORUBICIN [Suspect]
     Active Substance: DOXORUBICIN
     Indication: DIFFUSE LARGE B-CELL LYMPHOMA
     Dosage: DATE OF LAST DOSE PRIOR TO SAE: 18/SEP/2013
     Route: 042
     Dates: start: 20130918
  44. LORAZEPAM. [Concomitant]
     Active Substance: LORAZEPAM
     Dosage: AT NEIGHT
     Route: 048
  45. FLEET NOS [Concomitant]
     Active Substance: BISACODYL OR GLYCERIN OR MINERAL OIL OR SODIUM PHOSPHATE, DIBASIC\SODIUM PHOSPHATE, MONOBASIC
     Route: 054
     Dates: start: 20130930, end: 20130930
  46. DILAUDID [Concomitant]
     Active Substance: HYDROMORPHONE HYDROCHLORIDE
     Dosage: AS NEEDED
     Route: 058
     Dates: start: 20130927, end: 20130928
  47. LAX-A-DAY [Concomitant]
     Route: 048
     Dates: start: 20131001
  48. ADVAIR HFA [Concomitant]
     Active Substance: FLUTICASONE PROPIONATE\SALMETEROL XINAFOATE
     Route: 065
  49. AVODART [Concomitant]
     Active Substance: DUTASTERIDE
     Route: 048
  50. APO-RAMIPRIL [Concomitant]
     Active Substance: RAMIPRIL
     Route: 048
     Dates: start: 20131230, end: 20140131
  51. LIDOCAINE. [Concomitant]
     Active Substance: LIDOCAINE
     Dosage: 2 %, ORAL ONCOLOGICAL MOUTH WASH, AS NEEDED
     Route: 065
     Dates: start: 20131112, end: 20131120
  52. MYCOSTATIN [Concomitant]
     Active Substance: NYSTATIN
     Dosage: DOSE: 100000 UNITS, ORAL ONCOLOGICAL MOUTH WASH, AS NEEDED
     Route: 065
     Dates: start: 20131112, end: 20131120
  53. MYCOSTATIN [Concomitant]
     Active Substance: NYSTATIN
     Dosage: DOSE: 100000 UNITS, ORAL ONCOLOGICAL MOUTH WASH, AS NEEDED
     Route: 065
     Dates: start: 20131204, end: 20131211
  54. LYDERM [Concomitant]
     Route: 002
     Dates: start: 20131113, end: 20131120
  55. WHOLE BLOOD [Concomitant]
     Active Substance: WHOLE BLOOD
     Dosage: AS NEEDED
     Route: 042
     Dates: start: 20140130, end: 20140130
  56. SYNTHROID [Concomitant]
     Active Substance: LEVOTHYROXINE SODIUM
     Route: 048
     Dates: start: 200902
  57. DILAUDID [Concomitant]
     Active Substance: HYDROMORPHONE HYDROCHLORIDE
     Dosage: AS NEEDED
     Route: 048
     Dates: start: 20130930, end: 20130930
  58. LIDOCAINE. [Concomitant]
     Active Substance: LIDOCAINE
     Dosage: 2 %, ORAL ONCOLOGICAL MOUTH WASH, AS NEEDED
     Route: 065
     Dates: start: 20131024, end: 20131211
  59. TYLENOL [Concomitant]
     Active Substance: ACETAMINOPHEN
     Dosage: EXTRA STRENGTH, AS NEEDED
     Route: 048
     Dates: start: 20131206, end: 20131209
  60. DOCUSATE SODIUM. [Concomitant]
     Active Substance: DOCUSATE SODIUM
     Route: 048
     Dates: start: 20131228, end: 20140101

REACTIONS (1)
  - Ileus [Recovered/Resolved]

NARRATIVE: CASE EVENT DATE: 20130926
